FAERS Safety Report 5084214-6 (Version None)
Quarter: 2006Q3

REPORT INFORMATION
  Report Type: 
  Country: None (occurrence: None)
  Receive Date: 20060821
  Receipt Date: 19990601
  Transmission Date: 20061208
  Serious: Yes (Other)
  Sender: FDA-Public Use
  Company Number: US-BRISTOL-MYERS SQUIBB COMPANY-13176391

PATIENT
  Sex: Female

DRUGS (1)
  1. TEQUIN [Suspect]

REACTIONS (1)
  - CONVULSION [None]
